FAERS Safety Report 7460243-X (Version None)
Quarter: 2011Q2

REPORT INFORMATION
  Report Type: 
  Country: None (occurrence: None)
  Receive Date: 20110505
  Receipt Date: 20110501
  Transmission Date: 20111010
  Serious: No
  Sender: FDA-Public Use
  Company Number: US-TEVA-279806USA

PATIENT
  Age: 28 Year
  Sex: Female
  Weight: 59.02 kg

DRUGS (4)
  1. TRAZODONE HCL [Concomitant]
     Indication: INSOMNIA
  2. ABILIFY [Concomitant]
     Indication: ANXIETY
  3. SONATA [Concomitant]
     Indication: INSOMNIA
  4. PLAN B ONE-STEP [Suspect]
     Indication: POST COITAL CONTRACEPTION
     Dosage: 1.5 MILLIGRAM;
     Route: 048
     Dates: start: 20110430, end: 20110430

REACTIONS (1)
  - VOMITING [None]
